FAERS Safety Report 17076283 (Version 1)
Quarter: 2019Q4

REPORT INFORMATION
  Report Type: Spontaneous
  Country: CN (occurrence: CN)
  Receive Date: 20191126
  Receipt Date: 20191126
  Transmission Date: 20200122
  Serious: Yes (Hospitalization, Other)
  Sender: FDA-Public Use
  Company Number: CN-SA-2019SA327954

PATIENT
  Age: 55 Year
  Sex: Male

DRUGS (1)
  1. HARNAL [Suspect]
     Active Substance: TAMSULOSIN HYDROCHLORIDE
     Indication: PROSTATITIS
     Dosage: 0.2 MG, BID
     Route: 048
     Dates: start: 20190725, end: 20190727

REACTIONS (6)
  - Fall [Recovering/Resolving]
  - Nervous system disorder [Recovering/Resolving]
  - Gait disturbance [Recovering/Resolving]
  - Product use in unapproved indication [Unknown]
  - Dizziness [Recovering/Resolving]
  - Facial bones fracture [Recovering/Resolving]

NARRATIVE: CASE EVENT DATE: 20190725
